FAERS Safety Report 4978348-1 (Version None)
Quarter: 2006Q2

REPORT INFORMATION
  Report Type: 
  Country: None (occurrence: None)
  Receive Date: 20060420
  Receipt Date: 20060414
  Transmission Date: 20061013
  Serious: Yes (Other)
  Sender: FDA-Public Use
  Company Number: US-BRISTOL-MYERS SQUIBB COMPANY-13347349

PATIENT
  Age: 78 Year
  Sex: Male
  Weight: 86 kg

DRUGS (4)
  1. TEQUIN [Suspect]
     Indication: KIDNEY INFECTION
     Dates: start: 20060127
  2. ADALAT [Concomitant]
  3. GLIPIZIDE [Concomitant]
  4. INSULIN [Concomitant]

REACTIONS (1)
  - HYPOGLYCAEMIA [None]
